FAERS Safety Report 19744251 (Version 5)
Quarter: 2022Q1

REPORT INFORMATION
  Report Type: Spontaneous
  Country: DK (occurrence: DK)
  Receive Date: 20210825
  Receipt Date: 20220317
  Transmission Date: 20220423
  Serious: Yes (Death, Hospitalization, Other)
  Sender: FDA-Public Use
  Company Number: DK-ACCORD-218959

PATIENT
  Age: 75 Year
  Sex: Female
  Weight: 59 kg

DRUGS (59)
  1. OXALIPLATIN [Suspect]
     Active Substance: OXALIPLATIN
     Indication: Diffuse large B-cell lymphoma stage IV
     Dosage: 169 MILLIGRAM, ONCE (SINGLE)
     Route: 042
     Dates: start: 20201130, end: 20201130
  2. OXALIPLATIN [Suspect]
     Active Substance: OXALIPLATIN
     Dosage: 169 MILLIGRAM, ONCE (SINGLE)
     Route: 042
     Dates: start: 20201214, end: 20201214
  3. OXALIPLATIN [Suspect]
     Active Substance: OXALIPLATIN
     Dosage: 162 MILLIGRAM, ONCE (SINGLE)
     Route: 042
     Dates: start: 20210106, end: 20210106
  4. OXALIPLATIN [Suspect]
     Active Substance: OXALIPLATIN
     Dosage: 162 MILLIGRAM, ONCE (SINGLE)
     Route: 042
     Dates: start: 20210203
  5. OXALIPLATIN [Suspect]
     Active Substance: OXALIPLATIN
     Dosage: 162 MILLIGRAM  (SINGLE)
     Route: 042
     Dates: start: 20210203, end: 20210203
  6. GEMCITABINE [Suspect]
     Active Substance: GEMCITABINE
     Indication: Diffuse large B-cell lymphoma stage IV
     Dosage: 1690 MILLIGRAM, ONCE
     Route: 042
     Dates: start: 20201130, end: 20201130
  7. GEMCITABINE [Suspect]
     Active Substance: GEMCITABINE
     Dosage: 1690 MILLIGRAM, ONCE
     Route: 042
     Dates: start: 20201214, end: 20201214
  8. GEMCITABINE [Suspect]
     Active Substance: GEMCITABINE
     Dosage: 1620 MILLIGRAM, ONCE
     Route: 042
     Dates: start: 20210106, end: 20210106
  9. GEMCITABINE [Suspect]
     Active Substance: GEMCITABINE
     Dosage: 1619 MILLIGRAM, ONCE
     Route: 042
     Dates: start: 20210203
  10. GEMCITABINE [Suspect]
     Active Substance: GEMCITABINE
     Dosage: 1690 MILLIGRAM, ONCE
     Route: 042
     Dates: start: 20210203
  11. GEMCITABINE [Suspect]
     Active Substance: GEMCITABINE
     Dosage: 1620 MILLIGRAM, ONCE
     Route: 042
     Dates: start: 20210203
  12. EPCORITAMAB [Suspect]
     Active Substance: EPCORITAMAB
     Dosage: 0.16 MILLIGRAM, QD
     Route: 058
     Dates: start: 20201130, end: 20201130
  13. EPCORITAMAB [Suspect]
     Active Substance: EPCORITAMAB
     Dosage: 0.8 MILLIGRAM, QD
     Route: 058
     Dates: start: 20201207, end: 20201207
  14. EPCORITAMAB [Suspect]
     Active Substance: EPCORITAMAB
     Dosage: 24 MILLIGRAM, QW
     Route: 058
     Dates: start: 20210106, end: 20210106
  15. EPCORITAMAB [Suspect]
     Active Substance: EPCORITAMAB
     Dosage: 24 MILLIGRAM, QW
     Route: 058
     Dates: start: 20210125, end: 20210125
  16. EPCORITAMAB [Suspect]
     Active Substance: EPCORITAMAB
     Dosage: 24   MILLIGRAM, QW
     Route: 058
     Dates: start: 20210203, end: 20210226
  17. PANTOPRAZOLE [Concomitant]
     Active Substance: PANTOPRAZOLE
     Dosage: UNK
     Dates: start: 20180903
  18. FUROSEMIDE [Concomitant]
     Active Substance: FUROSEMIDE
     Dosage: UNK
     Dates: start: 20201216
  19. ALENDRONATE SODIUM [Concomitant]
     Active Substance: ALENDRONATE SODIUM
     Dosage: UNK
     Dates: start: 20150602, end: 20210226
  20. FOSCARNET [Concomitant]
     Active Substance: FOSCARNET
     Dosage: UNK
     Dates: start: 20210118, end: 20210121
  21. POTASSIUM CHLORIDE [Concomitant]
     Active Substance: POTASSIUM CHLORIDE
     Dosage: UNK
     Dates: start: 20181011
  22. POTASSIUM CHLORIDE [Concomitant]
     Active Substance: POTASSIUM CHLORIDE
     Dosage: UNK
     Dates: start: 20210221, end: 20210226
  23. PIPERACILLIN AND TAZOBACTAM [Concomitant]
     Active Substance: PIPERACILLIN SODIUM\TAZOBACTAM SODIUM
     Dosage: 12/1.5 G, CONTINUOUS
     Route: 042
     Dates: start: 20210111, end: 20210226
  24. PIPERACILLIN AND TAZOBACTAM [Concomitant]
     Active Substance: PIPERACILLIN SODIUM\TAZOBACTAM SODIUM
     Dosage: UNK
     Dates: start: 20210111, end: 20210120
  25. PIPERACILLIN AND TAZOBACTAM [Concomitant]
     Active Substance: PIPERACILLIN SODIUM\TAZOBACTAM SODIUM
     Dosage: 12/1.5 G, CONTINUOUS
     Route: 042
     Dates: start: 20210130, end: 20210226
  26. DIAZEPAM [Concomitant]
     Active Substance: DIAZEPAM
     Dosage: UNK
     Dates: start: 20200710
  27. DAPTOMYCIN [Concomitant]
     Active Substance: DAPTOMYCIN
     Dosage: UNK
     Dates: start: 20210111, end: 20210120
  28. OXYCODONE HYDROCHLORIDE [Concomitant]
     Active Substance: OXYCODONE HYDROCHLORIDE
     Dosage: UNK
     Dates: start: 20201122
  29. VALGANCICLOVIR [Concomitant]
     Active Substance: VALGANCICLOVIR
     Dosage: UNK
     Dates: start: 20210122
  30. GABAPENTIN [Concomitant]
     Active Substance: GABAPENTIN
     Dosage: UNK
     Dates: start: 20190309
  31. GANCICLOVIR [Concomitant]
     Active Substance: GANCICLOVIR
     Dosage: UNK
     Dates: start: 20210114, end: 20210118
  32. DEXAMETHASONE [Concomitant]
     Active Substance: DEXAMETHASONE
     Dosage: UNK
     Dates: start: 20210113, end: 20210117
  33. MIRTAZAPINE [Concomitant]
     Active Substance: MIRTAZAPINE
     Dosage: UNK
     Dates: start: 20180621
  34. LAMOTRIGINE [Concomitant]
     Active Substance: LAMOTRIGINE
     Dosage: UNK
     Dates: start: 20150702
  35. LINEZOLID [Concomitant]
     Active Substance: LINEZOLID
     Dosage: UNK
     Dates: start: 20210111, end: 20210120
  36. VANCOMYCIN [Concomitant]
     Active Substance: VANCOMYCIN
     Dosage: UNK
     Dates: start: 20210106, end: 20210116
  37. VANCOMYCIN [Concomitant]
     Active Substance: VANCOMYCIN
     Dosage: UNK
     Dates: start: 20210106, end: 20210228
  38. MAGNESIUM [Concomitant]
     Active Substance: MAGNESIUM
     Dosage: UNK
     Dates: start: 20210103
  39. POLYETHYLENE GLYCOLS [Concomitant]
     Active Substance: POLYETHYLENE GLYCOLS
     Dosage: UNK
     Dates: start: 20190216
  40. SODIUM PICOSULFATE [Concomitant]
     Active Substance: SODIUM PICOSULFATE
     Dosage: UNK
     Dates: start: 20200210
  41. SODIUM PICOSULFATE [Concomitant]
     Active Substance: SODIUM PICOSULFATE
     Dosage: UNK
     Dates: start: 20210210, end: 20210226
  42. GENTAMICIN [Concomitant]
     Active Substance: GENTAMICIN
     Dosage: 280 MILLIGRAM, QD
     Route: 042
     Dates: start: 20210111, end: 20210121
  43. GENTAMICIN [Concomitant]
     Active Substance: GENTAMICIN
     Dosage: UNK
     Dates: start: 20210111, end: 20210121
  44. GENTAMICIN [Concomitant]
     Active Substance: GENTAMICIN
     Dosage: 280 MILLIGRAM, QD
     Route: 042
     Dates: start: 20210209, end: 20210224
  45. SULFAMETHOXAZOLE\TRIMETHOPRIM [Concomitant]
     Active Substance: SULFAMETHOXAZOLE\TRIMETHOPRIM
     Dosage: UNK
     Dates: start: 20210106
  46. FLUCONAZOLE [Concomitant]
     Active Substance: FLUCONAZOLE
     Dosage: UNK
     Dates: start: 20201205
  47. CETIRIZINE                         /00884302/ [Concomitant]
     Dosage: UNK
     Dates: start: 20201130, end: 20210203
  48. FILGRASTIM [Concomitant]
     Active Substance: FILGRASTIM
     Dosage: UNK
     Dates: start: 20210210
  49. CASPOFUNGIN                        /01527902/ [Concomitant]
     Dosage: UNK
     Dates: start: 20210222, end: 20210226
  50. METRONIDAZOLE [Concomitant]
     Active Substance: METRONIDAZOLE
     Dosage: UNK
     Dates: start: 20210222, end: 20210226
  51. PREDNISOLON                        /00016201/ [Concomitant]
     Dosage: UNK
     Dates: start: 20201130, end: 20210209
  52. ACICLOVIR                          /00587302/ [Concomitant]
     Dosage: UNK
     Dates: start: 20210211, end: 20210217
  53. ACETAMINOPHEN [Concomitant]
     Active Substance: ACETAMINOPHEN
     Dosage: UNK
  54. VALACYCLOVIR HYDROCHLORIDE [Concomitant]
     Active Substance: VALACYCLOVIR HYDROCHLORIDE
     Dosage: UNK
     Dates: start: 20210205, end: 20210210
  55. COTRIMOXAZOLE [Concomitant]
     Active Substance: SULFAMETHOXAZOLE\TRIMETHOPRIM
     Dosage: UNK
     Dates: start: 20210106
  56. ACETAMINOPHEN [Concomitant]
     Active Substance: ACETAMINOPHEN
     Dosage: UNK
     Dates: start: 20201130, end: 20210203
  57. IMMUNGLOBULIN [Concomitant]
     Dosage: UNK
     Dates: start: 20210213, end: 20210213
  58. ALLOPURINOL [Concomitant]
     Active Substance: ALLOPURINOL
     Dosage: UNK
     Dates: start: 20201130, end: 20210203
  59. PEGFILGRASTIM [Concomitant]
     Active Substance: PEGFILGRASTIM
     Dosage: UNK
     Dates: start: 20210109, end: 20210109

REACTIONS (4)
  - Bronchopulmonary aspergillosis [Fatal]
  - Immune effector cell-associated neurotoxicity syndrome [Recovered/Resolved]
  - Pyrexia [Recovered/Resolved]
  - Off label use [Unknown]

NARRATIVE: CASE EVENT DATE: 20210130
